FAERS Safety Report 9001836 (Version 2)
Quarter: 2013Q1

REPORT INFORMATION
  Report Type: Report from Study
  Country: PL (occurrence: PL)
  Receive Date: 20130107
  Receipt Date: 20130117
  Transmission Date: 20140127
  Serious: Yes (Hospitalization)
  Sender: FDA-Public Use
  Company Number: PL-UCBSA-074124

PATIENT
  Age: 29 Year
  Sex: Female
  Weight: 53.2 kg

DRUGS (2)
  1. CERTOLIZUMAB PEGOL [Suspect]
     Indication: CROHN^S DISEASE
     Dosage: NO. OF DOSES RECEIVED: 54
     Route: 058
     Dates: start: 20081229
  2. SASA [Concomitant]
     Indication: CROHN^S DISEASE
     Route: 048
     Dates: start: 20070713

REACTIONS (1)
  - Upper respiratory tract infection [Recovered/Resolved]
